FAERS Safety Report 23422052 (Version 7)
Quarter: 2024Q3

REPORT INFORMATION
  Report Type: Spontaneous
  Country: US (occurrence: US)
  Receive Date: 20240119
  Receipt Date: 20240930
  Transmission Date: 20241017
  Serious: Yes (Hospitalization, Other)
  Sender: TEIKOKU
  Company Number: US-TPU-TPU-2024-00003

PATIENT
  Age: 50 Year
  Sex: Female

DRUGS (2)
  1. LIDOCAINE [Suspect]
     Active Substance: LIDOCAINE
     Indication: Spina bifida
     Route: 061
  2. LIDOCAINE [Suspect]
     Active Substance: LIDOCAINE

REACTIONS (15)
  - Haematemesis [Unknown]
  - Lung abscess [Unknown]
  - Hypoxia [Unknown]
  - Pneumonia [Not Recovered/Not Resolved]
  - Ulcer [Recovered/Resolved with Sequelae]
  - Haemorrhage [Unknown]
  - Hypoxia [Unknown]
  - Seizure [Unknown]
  - Therapeutic product effect incomplete [Not Recovered/Not Resolved]
  - Monoplegia [Not Recovered/Not Resolved]
  - Fibrosis [Not Recovered/Not Resolved]
  - Brain injury [Not Recovered/Not Resolved]
  - Nasopharyngitis [Unknown]
  - Therapeutic product effect incomplete [Unknown]
  - Eye infection [Not Recovered/Not Resolved]

NARRATIVE: CASE EVENT DATE: 20221217
